FAERS Safety Report 8471294-0 (Version None)
Quarter: 2012Q2

REPORT INFORMATION
  Report Type: 
  Country: None (occurrence: None)
  Receive Date: 20120627
  Receipt Date: 20120622
  Transmission Date: 20120825
  Serious: Yes (Hospitalization)
  Sender: FDA-Public Use
  Company Number: JP-PFIZER INC-2012138947

PATIENT
  Age: 60 Year
  Sex: Male
  Weight: 95 kg

DRUGS (25)
  1. EPADEL S [Concomitant]
     Indication: HYPERLIPIDAEMIA
     Dosage: 900 MG, 2X/DAY
     Route: 048
     Dates: start: 20110117
  2. LEVEMIR [Concomitant]
     Dosage: 30 IU, 1X/DAY
     Route: 058
     Dates: start: 20120403
  3. CRAVIT [Concomitant]
     Indication: BRONCHITIS
     Dosage: 500 MG, 1X/DAY
     Route: 048
     Dates: start: 20120604, end: 20120608
  4. LIGHTGEN [Concomitant]
     Indication: BRONCHITIS
     Dosage: 10 CC/DAY
     Route: 048
     Dates: start: 20120607, end: 20120608
  5. PLACEBO [Suspect]
     Indication: CARDIAC FAILURE CHRONIC
     Dosage: BLINDED DOSE; ONCE DAILY
     Route: 048
     Dates: start: 20110701, end: 20110728
  6. EPLERENONE [Suspect]
     Dosage: BLINDED DOSE; ONCE DAILY
     Route: 048
     Dates: start: 20110729
  7. BLINDED NO SUBJECT DRUG [Suspect]
     Dosage: BLINDED DOSE; ONCE DAILY
     Route: 048
     Dates: start: 20110729
  8. LIPITOR [Concomitant]
     Indication: HYPERLIPIDAEMIA
     Dosage: 10 MG, 1X/DAY
     Route: 048
     Dates: start: 20060812
  9. DIART [Concomitant]
     Indication: CARDIAC FAILURE
     Dosage: 30 MG, 2X/DAY
     Route: 048
     Dates: start: 20110623, end: 20120427
  10. CARVEDILOL [Suspect]
     Indication: CARDIAC FAILURE
     Dosage: 5 MG, 1X/DAY
     Route: 048
     Dates: start: 20110204
  11. PLAVIX [Concomitant]
     Indication: THROMBOSIS PROPHYLAXIS
     Dosage: 75 MG, 1X/DAY
     Route: 048
     Dates: start: 20110113
  12. FEBURIC [Concomitant]
     Indication: HYPERURICAEMIA
     Dosage: 10 MG, 1X/DAY
     Route: 048
     Dates: start: 20120404
  13. BROCIN [Concomitant]
     Indication: BRONCHITIS
     Dosage: 10 CC/DAY
     Route: 048
     Dates: start: 20120607, end: 20120608
  14. NOVORAPID [Concomitant]
     Indication: DIABETES MELLITUS
     Dosage: 12 UNITS BEFORE BREAKFAST, 12 UNITS BEFORE LUNCH, 16 UNITS BEFORE DINNER
     Route: 058
     Dates: start: 20120316
  15. BLINDED NO SUBJECT DRUG [Suspect]
     Indication: CARDIAC FAILURE CHRONIC
     Dosage: BLINDED DOSE; ONCE DAILY
     Route: 048
     Dates: start: 20110701, end: 20110728
  16. TORSEMIDE [Suspect]
     Indication: CARDIAC FAILURE
     Dosage: 4 MG, 2X/DAY
     Route: 048
     Dates: start: 20120428, end: 20120525
  17. TORSEMIDE [Suspect]
     Dosage: 6 MG, 2X/DAY
     Route: 048
     Dates: start: 20120526
  18. ZANTAC [Concomitant]
     Indication: GASTRITIS PROPHYLAXIS
     Dosage: 75 MG, 2X/DAY
     Route: 048
     Dates: start: 20110713
  19. EPLERENONE [Suspect]
     Indication: CARDIAC FAILURE CHRONIC
     Dosage: BLINDED DOSE; ONCE DAILY
     Route: 048
     Dates: start: 20110701, end: 20110728
  20. PLACEBO [Suspect]
     Dosage: BLINDED DOSE; ONCE DAILY
     Route: 048
     Dates: start: 20110729
  21. ACECOL [Suspect]
     Indication: HYPERTENSION
     Dosage: 2 MG, 1X/DAY
     Route: 048
     Dates: start: 20110128
  22. ASPIRIN [Concomitant]
     Indication: THROMBOSIS PROPHYLAXIS
     Dosage: 100 MG, 1X/DAY
     Route: 048
     Dates: start: 20110113
  23. EPINASTINE HYDROCHLORIDE [Concomitant]
     Indication: DERMATITIS ATOPIC
     Dosage: 20 MG, 1X/DAY
     Route: 048
     Dates: start: 20110128
  24. LEVEMIR [Concomitant]
     Indication: DIABETES MELLITUS
     Dosage: 26 IU, 1X/DAY
     Route: 058
     Dates: start: 20120316, end: 20120402
  25. DIFLORASONE DIACETATE [Concomitant]
     Indication: DERMATITIS ATOPIC
     Dosage: MODERATE AMOUNT, AS NEEDED
     Route: 062
     Dates: start: 20110128

REACTIONS (1)
  - SYNCOPE [None]
